FAERS Safety Report 17558587 (Version 2)
Quarter: 2020Q1

REPORT INFORMATION
  Report Type: Spontaneous
  Country: EG (occurrence: EG)
  Receive Date: 20200318
  Receipt Date: 20200326
  Transmission Date: 20200409
  Serious: Yes (Hospitalization, Other)
  Sender: FDA-Public Use
  Company Number: EG-NOVOPROD-718303

PATIENT
  Age: 64 Year
  Sex: Male
  Weight: 70 kg

DRUGS (7)
  1. MAREVAN [Concomitant]
     Active Substance: WARFARIN SODIUM
     Indication: CARDIAC DISORDER
     Dosage: HALF TAB DAILY (1 MG) STARTED 12 YEARS AGO
     Route: 048
  2. ATOR [Concomitant]
     Active Substance: ATORVASTATIN CALCIUM
     Indication: CARDIAC DISORDER
     Dosage: 1 TAB. DAILY, STARTED 12 YEARS AGO
     Route: 048
  3. MIXTARD 30 HM PENFILL [Suspect]
     Active Substance: INSULIN HUMAN
     Indication: DIABETES MELLITUS
     Dosage: 20U MORNING-40U EVENING
     Route: 058
     Dates: start: 201907
  4. PLAVIX [Concomitant]
     Active Substance: CLOPIDOGREL BISULFATE
     Indication: CARDIAC DISORDER
     Dosage: 1 TAB. DAILY AFTER DINNER, STARTED 12 YEARS AGO
     Route: 048
  5. CAPOTRIL [Concomitant]
     Indication: CARDIAC DISORDER
     Dosage: 1 TAB. TWICE DAILY, STARTED 12 YEARS AGO
     Route: 048
  6. MIXTARD 30 HM PENFILL [Suspect]
     Active Substance: INSULIN HUMAN
     Dosage: 20U MORNING-40U EVENING
     Route: 058
  7. MAREVAN [Concomitant]
     Active Substance: WARFARIN SODIUM
     Indication: CARDIAC DISORDER
     Dosage: 1 TAB. DAILY, STARTED 12 YEARS AGO
     Route: 048

REACTIONS (3)
  - Myocardial infarction [Recovered/Resolved]
  - Pulmonary artery occlusion [Recovered/Resolved]
  - Mitral valve disease [Recovered/Resolved]
